FAERS Safety Report 6448362-8 (Version None)
Quarter: 2009Q4

REPORT INFORMATION
  Report Type: 
  Country: None (occurrence: None)
  Receive Date: 20091120
  Receipt Date: 20091106
  Transmission Date: 20100525
  Serious: Yes (Other)
  Sender: FDA-Public Use
  Company Number: PHHY2009AU48574

PATIENT

DRUGS (2)
  1. GLEEVEC [Suspect]
     Dosage: UNK
  2. GLEEVEC [Suspect]
     Dosage: 700 MG, UNK

REACTIONS (1)
  - BLOOD PRODUCT TRANSFUSION DEPENDENT [None]
